FAERS Safety Report 21747218 (Version 1)
Quarter: 2022Q4

REPORT INFORMATION
  Report Type: Spontaneous
  Country: US (occurrence: None)
  Receive Date: 20221217
  Receipt Date: 20221217
  Transmission Date: 20230112
  Serious: No
  Sender: FDA-Public Use
  Company Number: None

PATIENT
  Sex: Female

DRUGS (1)
  1. PAXLOVID [Suspect]
     Active Substance: NIRMATRELVIR\RITONAVIR
     Dosage: FREQUENCY : TWICE A DAY;?
     Dates: start: 20221213, end: 20221217

REACTIONS (6)
  - Paraesthesia [None]
  - Eyelid irritation [None]
  - Nasal discomfort [None]
  - Oral discomfort [None]
  - Oral discomfort [None]
  - Anaphylactic reaction [None]

NARRATIVE: CASE EVENT DATE: 20221217
